FAERS Safety Report 5917627-8 (Version None)
Quarter: 2008Q4

REPORT INFORMATION
  Report Type: 
  Country: None (occurrence: None)
  Receive Date: 20081014
  Receipt Date: 20081010
  Transmission Date: 20090506
  Serious: Yes (Hospitalization)
  Sender: FDA-Public Use
  Company Number: US-MERCK-0810USA02078

PATIENT

DRUGS (1)
  1. ISENTRESS [Suspect]
     Route: 065

REACTIONS (1)
  - SEPSIS [None]
